FAERS Safety Report 12695394 (Version 4)
Quarter: 2016Q3

REPORT INFORMATION
  Report Type: Report from Study
  Country: JP (occurrence: JP)
  Receive Date: 20160829
  Receipt Date: 20160926
  Transmission Date: 20161109
  Serious: Yes (Death, Life-Threatening, Hospitalization, Other)
  Sender: FDA-Public Use
  Company Number: JP-BRISTOL-MYERS SQUIBB COMPANY-BMS-2016-069877

PATIENT
  Age: 74 Year
  Sex: Female
  Weight: 49 kg

DRUGS (15)
  1. DIOVAN [Concomitant]
     Active Substance: VALSARTAN
     Indication: HYPERTENSION
     Dosage: 80 MG, DAILY
     Route: 048
     Dates: start: 1987, end: 20160812
  2. UNIPHYLLA [Concomitant]
     Active Substance: THEOPHYLLINE ANHYDROUS
     Indication: ASTHMA
     Dosage: 200 MG, QD
     Route: 048
     Dates: start: 20111006, end: 20160812
  3. MYSLEE [Concomitant]
     Active Substance: ZOLPIDEM TARTRATE
     Indication: INSOMNIA
     Dosage: 5 MG, QD
     Route: 048
     Dates: start: 20131206, end: 20160812
  4. MANNITOL. [Concomitant]
     Active Substance: MANNITOL
     Indication: DEFICIENCY ANAEMIA
     Dosage: UNK
     Route: 042
     Dates: start: 20160804, end: 20160809
  5. ADENINE [Concomitant]
     Active Substance: ADENINE
     Indication: DEFICIENCY ANAEMIA
     Dosage: UNK
     Route: 042
     Dates: start: 20160804, end: 20160809
  6. NORVASC [Concomitant]
     Active Substance: AMLODIPINE BESYLATE
     Indication: HYPERTENSION
     Dosage: 2.5 MG, QD
     Route: 048
     Dates: start: 1987, end: 20160812
  7. CRESTOR [Concomitant]
     Active Substance: ROSUVASTATIN CALCIUM
     Indication: HYPERLIPIDAEMIA
     Dosage: 2.5 MG, QD
     Route: 048
     Dates: start: 20110512, end: 20160812
  8. PHOSPHATE                          /01053101/ [Concomitant]
     Indication: DEFICIENCY ANAEMIA
     Dosage: UNK
     Route: 042
     Dates: start: 20160804, end: 20160809
  9. APIXABAN [Suspect]
     Active Substance: APIXABAN
     Indication: CEREBROVASCULAR ACCIDENT PROPHYLAXIS
     Dosage: 2.5 MG, BID
     Route: 048
     Dates: start: 20160704, end: 20160812
  10. FESIN                              /00023550/ [Concomitant]
     Active Substance: IRON SUCROSE
     Indication: IRON DEFICIENCY ANAEMIA
     Dosage: 40 MG, UNK
     Route: 042
     Dates: start: 20151204, end: 20160802
  11. PHOSPHATE                          /01053101/ [Concomitant]
     Indication: DEFICIENCY ANAEMIA
  12. SENNA [Concomitant]
     Active Substance: SENNA LEAF\SENNOSIDES\SENNOSIDES A AND B
     Indication: CONSTIPATION
     Dosage: 0.5 G, QD
     Route: 048
     Dates: start: 20110602, end: 20160812
  13. MAINTATE [Concomitant]
     Active Substance: BISOPROLOL FUMARATE
     Indication: HYPERTENSION
     Dosage: 2.5 MG, QD
     Route: 048
     Dates: start: 20150108, end: 20160812
  14. NEXIUM [Concomitant]
     Active Substance: ESOMEPRAZOLE MAGNESIUM
     Indication: GASTROOESOPHAGEAL REFLUX DISEASE
     Dosage: D
     Route: 048
     Dates: start: 20160719, end: 20160812
  15. ADENINE [Concomitant]
     Active Substance: ADENINE
     Indication: DEFICIENCY ANAEMIA

REACTIONS (10)
  - Adrenal neoplasm [Fatal]
  - Aortic dissection [Not Recovered/Not Resolved]
  - Malignant pleural effusion [Fatal]
  - Aspiration pleural cavity [Unknown]
  - Gastric cancer [Fatal]
  - Transfusion [Unknown]
  - Occult blood [Unknown]
  - Tumour associated fever [Unknown]
  - Artery dissection [Unknown]
  - Iron deficiency anaemia [Unknown]

NARRATIVE: CASE EVENT DATE: 20160812
